FAERS Safety Report 11637789 (Version 1)
Quarter: 2015Q4

REPORT INFORMATION
  Report Type: Spontaneous
  Country: FR (occurrence: FR)
  Receive Date: 20151016
  Receipt Date: 20151016
  Transmission Date: 20160304
  Serious: Yes (Hospitalization, Other)
  Sender: FDA-Public Use
  Company Number: FR-PFIZER INC-2015338608

PATIENT
  Age: 66 Year
  Sex: Female

DRUGS (10)
  1. BISOCE [Concomitant]
     Active Substance: BISOPROLOL
     Dosage: UNK
  2. TAHOR [Suspect]
     Active Substance: ATORVASTATIN CALCIUM
     Dosage: UNK
  3. AMIKACINE MYLAN [Suspect]
     Active Substance: AMIKACIN
     Indication: SEPSIS
     Dosage: 1400 MG, 1X/DAY
     Route: 042
     Dates: start: 20150909, end: 20150910
  4. TAFINLAR [Concomitant]
     Active Substance: DABRAFENIB MESYLATE
     Dosage: UNK
  5. TRAVATAN [Concomitant]
     Active Substance: TRAVOPROST
     Dosage: UNK
  6. PIPERACILLINE / TAZOBACTAM MYLAN [Suspect]
     Active Substance: PIPERACILLIN SODIUM\TAZOBACTAM SODIUM
     Indication: SEPSIS
     Dosage: 4 G, 3X/DAY
     Route: 042
     Dates: start: 20150909
  7. MEKINIST [Concomitant]
     Active Substance: TRAMETINIB DIMETHYL SULFOXIDE
     Dosage: UNK
  8. VOLTARENE [Concomitant]
     Active Substance: DICLOFENAC SODIUM
     Dosage: UNK
  9. MOPRAL [Concomitant]
     Active Substance: OMEPRAZOLE SODIUM
     Dosage: UNK
  10. DOLIPRANE [Concomitant]
     Active Substance: ACETAMINOPHEN
     Dosage: UNK

REACTIONS (9)
  - Sepsis [Unknown]
  - Malignant melanoma [Not Recovered/Not Resolved]
  - Hypocalcaemia [Unknown]
  - Fanconi syndrome [Not Recovered/Not Resolved]
  - Septic shock [Unknown]
  - Renal tubular disorder [Not Recovered/Not Resolved]
  - Acute kidney injury [Unknown]
  - Hypophosphataemia [Unknown]
  - Hypokalaemia [Unknown]

NARRATIVE: CASE EVENT DATE: 20150909
